FAERS Safety Report 6148493-6 (Version None)
Quarter: 2009Q2

REPORT INFORMATION
  Report Type: 
  Country: None (occurrence: None)
  Receive Date: 20090408
  Receipt Date: 20090401
  Transmission Date: 20091009
  Serious: Yes (Other)
  Sender: FDA-Public Use
  Company Number: PHHY2009US12501

PATIENT
  Age: 74 Year
  Sex: Male

DRUGS (5)
  1. CYCLOSPORINE [Suspect]
     Indication: STEM CELL TRANSPLANT
  2. VORICONAZOLE [Concomitant]
     Route: 048
  3. AMPHOTERICIN B [Concomitant]
  4. PREDNISONE [Concomitant]
  5. CASPOFUNGIN [Concomitant]

REACTIONS (7)
  - ASPERGILLOSIS [None]
  - CYTOMEGALOVIRUS VIRAEMIA [None]
  - GRAFT VERSUS HOST DISEASE [None]
  - HALLUCINATION [None]
  - NEPHROPATHY TOXIC [None]
  - OSTEOMYELITIS FUNGAL [None]
  - SURGERY [None]
